FAERS Safety Report 20100916 (Version 1)
Quarter: 2021Q4

REPORT INFORMATION
  Report Type: Spontaneous
  Country: US (occurrence: None)
  Receive Date: 20211122
  Receipt Date: 20211122
  Transmission Date: 20220303
  Serious: Yes (Hospitalization)
  Sender: FDA-Public Use
  Company Number: None

PATIENT
  Age: 79 Year
  Sex: Female
  Weight: 54.2 kg

DRUGS (1)
  1. YESCARTA [Suspect]
     Active Substance: AXICABTAGENE CILOLEUCEL
     Indication: Non-Hodgkin^s lymphoma
     Dates: start: 20211018, end: 20211018

REACTIONS (8)
  - Tremor [None]
  - Myoclonus [None]
  - Neurotoxicity [None]
  - Hypocalcaemia [None]
  - Klebsiella test positive [None]
  - Diarrhoea [None]
  - Clostridium test positive [None]
  - Giardia test positive [None]

NARRATIVE: CASE EVENT DATE: 20211018
